FAERS Safety Report 23974869 (Version 1)
Quarter: 2024Q2

REPORT INFORMATION
  Report Type: Spontaneous
  Country: ES (occurrence: ES)
  Receive Date: 20240614
  Receipt Date: 20240614
  Transmission Date: 20240715
  Serious: Yes (Death, Hospitalization)
  Sender: FDA-Public Use
  Company Number: ES-CHEPLA-2024007470

PATIENT
  Age: 66 Year
  Sex: Male

DRUGS (7)
  1. GANCICLOVIR [Suspect]
     Active Substance: GANCICLOVIR
     Indication: Cytomegalovirus test positive
     Route: 042
  2. GANCICLOVIR [Suspect]
     Active Substance: GANCICLOVIR
     Indication: Cytomegalovirus viraemia
     Route: 042
  3. PIPERACILLIN [Suspect]
     Active Substance: PIPERACILLIN
     Indication: Moraxella infection
  4. TAZOBACTAM [Suspect]
     Active Substance: TAZOBACTAM
     Indication: Moraxella infection
  5. COTRIMOXAZOLE [Suspect]
     Active Substance: SULFAMETHOXAZOLE\TRIMETHOPRIM
     Indication: Lymphopenia
  6. HUMAN IMMUNOGLOBULIN G [Suspect]
     Active Substance: HUMAN IMMUNOGLOBULIN G
     Indication: Selective IgG subclass deficiency
     Route: 042
  7. HUMAN CYTOMEGALOVIRUS IMMUNE GLOBULIN [Suspect]
     Active Substance: HUMAN CYTOMEGALOVIRUS IMMUNE GLOBULIN
     Indication: Cytomegalovirus viraemia

REACTIONS (7)
  - Shock haemorrhagic [Fatal]
  - Disease progression [Not Recovered/Not Resolved]
  - Ileus paralytic [Not Recovered/Not Resolved]
  - Gastrointestinal wall thickening [Not Recovered/Not Resolved]
  - Gastrointestinal haemorrhage [Not Recovered/Not Resolved]
  - Cytomegalovirus infection [Not Recovered/Not Resolved]
  - Combined immunodeficiency [Not Recovered/Not Resolved]
